FAERS Safety Report 10220943 (Version 1)
Quarter: 2014Q2

REPORT INFORMATION
  Report Type: Spontaneous
  Country: US (occurrence: None)
  Receive Date: 20140605
  Receipt Date: 20140605
  Transmission Date: 20141212
  Serious: Yes (Other)
  Sender: FDA-Public Use
  Company Number: None

PATIENT
  Age: 76 Year
  Sex: Female

DRUGS (2)
  1. BENDAMUSTINE HYDROCHLORIDE [Suspect]
     Dates: start: 20140423
  2. RITUXIMAB (MOAB C2B8 ANTI CD20, CHIMERIC) [Concomitant]
     Dates: start: 20140421

REACTIONS (4)
  - Fall [None]
  - Dizziness [None]
  - Haemoglobin decreased [None]
  - Pancytopenia [None]
